FAERS Safety Report 13815910 (Version 3)
Quarter: 2017Q4

REPORT INFORMATION
  Report Type: Spontaneous
  Country: US (occurrence: US)
  Receive Date: 20170731
  Receipt Date: 20171031
  Transmission Date: 20180320
  Serious: Yes (Death, Other)
  Sender: FDA-Public Use
  Company Number: US-IMPAX LABORATORIES, INC-2017-IPXL-02302

PATIENT
  Age: 81 Year
  Sex: Male

DRUGS (1)
  1. RYTARY [Suspect]
     Active Substance: CARBIDOPA\LEVODOPA
     Indication: PRODUCT USED FOR UNKNOWN INDICATION
     Dosage: (48.75/195 MG AND 61.25/245 MG), THREE TIMES A DAY
     Route: 048

REACTIONS (5)
  - Balance disorder [Unknown]
  - Hypoacusis [Unknown]
  - Gait inability [Unknown]
  - Surgery [Unknown]
  - Death [Fatal]
